FAERS Safety Report 18336994 (Version 2)
Quarter: 2020Q4

REPORT INFORMATION
  Report Type: Spontaneous
  Country: US (occurrence: US)
  Receive Date: 20201001
  Receipt Date: 20201015
  Transmission Date: 20210113
  Serious: Yes (Other)
  Sender: FDA-Public Use
  Company Number: US-BAXTER-2020BAX019984

PATIENT
  Age: 67 Year
  Sex: Female

DRUGS (3)
  1. DOXIL [Suspect]
     Active Substance: DOXORUBICIN HYDROCHLORIDE
     Indication: ANGIOSARCOMA METASTATIC
     Dosage: AIM (ON DAY 1-3)
     Route: 065
  2. MESNEX [Suspect]
     Active Substance: MESNA
     Indication: ANGIOSARCOMA METASTATIC
     Route: 065
  3. IFOSFAMIDE FOR INJECTION [Suspect]
     Active Substance: IFOSFAMIDE
     Indication: ANGIOSARCOMA METASTATIC
     Dosage: AIM, ON DAYS 1-5
     Route: 065

REACTIONS (1)
  - Febrile neutropenia [Unknown]
